FAERS Safety Report 9703263 (Version 2)
Quarter: 2013Q4

REPORT INFORMATION
  Report Type: Spontaneous
  Country: VE (occurrence: VE)
  Receive Date: 20131122
  Receipt Date: 20131220
  Transmission Date: 20140711
  Serious: Yes (Other)
  Sender: FDA-Public Use
  Company Number: VE-JNJFOC-20131110448

PATIENT
  Age: 78 Year
  Sex: Male

DRUGS (6)
  1. XARELTO [Suspect]
     Indication: CEREBROVASCULAR ACCIDENT PROPHYLAXIS
     Route: 048
     Dates: start: 20131101
  2. XARELTO [Suspect]
     Indication: ATRIAL FIBRILLATION
     Route: 048
     Dates: start: 20131101
  3. TRILEPTAL [Concomitant]
     Indication: EPILEPSY
     Route: 065
  4. NEBILET [Concomitant]
     Indication: HYPERTENSION
     Route: 065
  5. APROVEL [Concomitant]
     Route: 065
  6. DIGOXIN [Concomitant]
     Route: 065

REACTIONS (2)
  - Peripheral embolism [Recovered/Resolved]
  - Drug ineffective [Unknown]
